FAERS Safety Report 18487372 (Version 2)
Quarter: 2021Q1

REPORT INFORMATION
  Report Type: Report from Study
  Country: None (occurrence: US)
  Receive Date: 20201111
  Receipt Date: 20210114
  Transmission Date: 20210419
  Serious: Yes (Death, Hospitalization)
  Sender: FDA-Public Use
  Company Number: US-ABBVIE-20K-163-3644733-00

PATIENT
  Sex: Male

DRUGS (1)
  1. HUMIRA [Suspect]
     Active Substance: ADALIMUMAB
     Indication: PRODUCT USED FOR UNKNOWN INDICATION
     Route: 058

REACTIONS (8)
  - COVID-19 [Fatal]
  - Renal disorder [Fatal]
  - Retinal disorder [Fatal]
  - Adverse event [Fatal]
  - Cardiac failure [Fatal]
  - Cardiac disorder [Fatal]
  - Diabetes mellitus [Fatal]
  - Loss of consciousness [Unknown]
